FAERS Safety Report 8748256 (Version 2)
Quarter: 2013Q2

REPORT INFORMATION
  Report Type: Spontaneous
  Country: US (occurrence: US)
  Receive Date: 20120827
  Receipt Date: 20130430
  Transmission Date: 20140414
  Serious: Yes (Other)
  Sender: FDA-Public Use
  Company Number: US-ROCHE-1102757

PATIENT
  Age: 27 Year
  Sex: Female

DRUGS (2)
  1. ACCUTANE [Suspect]
     Indication: ACNE
     Dosage: 20 MG, 40 MG
     Route: 065
     Dates: start: 200008, end: 200206
  2. ACCUTANE [Suspect]
     Dosage: 20 MG, 40 MG
     Route: 065
     Dates: end: 2003

REACTIONS (6)
  - Inflammatory bowel disease [Unknown]
  - Injury [Unknown]
  - Irritable bowel syndrome [Unknown]
  - Eczema [Unknown]
  - Dry skin [Unknown]
  - Acne [Unknown]
